FAERS Safety Report 20638647 (Version 50)
Quarter: 2025Q4

REPORT INFORMATION
  Report Type: Spontaneous
  Country: CA (occurrence: CA)
  Receive Date: 20220325
  Receipt Date: 20251225
  Transmission Date: 20260118
  Serious: Yes (Hospitalization, Other)
  Sender: TAKEDA
  Company Number: CA-TAKEDA-2021TUS063646

PATIENT
  Age: 41 Year
  Sex: Female

DRUGS (527)
  1. VENLAFAXINE HYDROCHLORIDE [Suspect]
     Active Substance: VENLAFAXINE HYDROCHLORIDE
     Indication: Product used for unknown indication
     Dosage: 75 MILLIGRAM
  2. VENLAFAXINE HYDROCHLORIDE [Suspect]
     Active Substance: VENLAFAXINE HYDROCHLORIDE
     Dosage: 150 MILLIGRAM
  3. VENLAFAXINE HYDROCHLORIDE [Suspect]
     Active Substance: VENLAFAXINE HYDROCHLORIDE
     Dosage: UNK
  4. VENLAFAXINE HYDROCHLORIDE [Suspect]
     Active Substance: VENLAFAXINE HYDROCHLORIDE
     Dosage: 150 MILLIGRAM
  5. VENLAFAXINE HYDROCHLORIDE [Suspect]
     Active Substance: VENLAFAXINE HYDROCHLORIDE
     Dosage: UNK
  6. VENLAFAXINE HYDROCHLORIDE [Suspect]
     Active Substance: VENLAFAXINE HYDROCHLORIDE
     Dosage: 150 MILLIGRAM
  7. VENLAFAXINE HYDROCHLORIDE [Suspect]
     Active Substance: VENLAFAXINE HYDROCHLORIDE
     Dosage: UNK
  8. LANSOPRAZOLE [Suspect]
     Active Substance: LANSOPRAZOLE
     Indication: Migraine
     Dosage: 30 MILLIGRAM
  9. LANSOPRAZOLE [Suspect]
     Active Substance: LANSOPRAZOLE
     Dosage: 1 DOSAGE FORM, QD
  10. LANSOPRAZOLE [Suspect]
     Active Substance: LANSOPRAZOLE
     Dosage: 30 MILLIGRAM
  11. LANSOPRAZOLE [Suspect]
     Active Substance: LANSOPRAZOLE
     Dosage: UNK
  12. LANSOPRAZOLE [Suspect]
     Active Substance: LANSOPRAZOLE
     Indication: Migraine
     Dosage: 30 MILLIGRAM
  13. LANSOPRAZOLE [Suspect]
     Active Substance: LANSOPRAZOLE
     Dosage: UNK
  14. LANSOPRAZOLE [Suspect]
     Active Substance: LANSOPRAZOLE
     Dosage: UNK
  15. DEXAMETHASONE [Suspect]
     Active Substance: DEXAMETHASONE
     Indication: Migraine
     Dosage: 1 DOSAGE FORM, QD
  16. DEXAMETHASONE [Suspect]
     Active Substance: DEXAMETHASONE
     Dosage: 2 MILLIGRAM, QD
  17. DEXAMETHASONE [Suspect]
     Active Substance: DEXAMETHASONE
     Dosage: 1 DOSAGE FORM
  18. DEXAMETHASONE [Suspect]
     Active Substance: DEXAMETHASONE
     Dosage: 2 MILLIGRAM
  19. DEXAMETHASONE [Suspect]
     Active Substance: DEXAMETHASONE
     Dosage: UNK
  20. DEXAMETHASONE [Suspect]
     Active Substance: DEXAMETHASONE
     Dosage: UNK
  21. DEXAMETHASONE SODIUM PHOSPHATE [Suspect]
     Active Substance: DEXAMETHASONE SODIUM PHOSPHATE
     Indication: Migraine
     Dosage: UNK
  22. DEXAMETHASONE SODIUM PHOSPHATE [Suspect]
     Active Substance: DEXAMETHASONE SODIUM PHOSPHATE
     Dosage: UNK UNK, QD
  23. DEXAMETHASONE [Suspect]
     Active Substance: DEXAMETHASONE
     Indication: Migraine
     Dosage: 1 DOSAGE FORM
  24. DEXAMETHASONE [Suspect]
     Active Substance: DEXAMETHASONE
     Dosage: 2 MILLIGRAM
  25. DEXAMETHASONE [Suspect]
     Active Substance: DEXAMETHASONE
     Dosage: 1 DOSAGE FORM
  26. DEXAMETHASONE [Suspect]
     Active Substance: DEXAMETHASONE
     Dosage: UNK
  27. DEXAMETHASONE [Suspect]
     Active Substance: DEXAMETHASONE
     Dosage: UNK
  28. ACETAMINOPHEN [Suspect]
     Active Substance: ACETAMINOPHEN
     Indication: Product used for unknown indication
     Dosage: 10 MILLIGRAM
  29. AMOXICILLIN [Suspect]
     Active Substance: AMOXICILLIN
     Indication: Product used for unknown indication
     Dosage: 2 DOSAGE FORM, TID
  30. AMOXICILLIN [Suspect]
     Active Substance: AMOXICILLIN
     Dosage: 6 DOSAGE FORM, QD
  31. AMOXICILLIN [Suspect]
     Active Substance: AMOXICILLIN
     Dosage: 2 DOSAGE FORM
  32. AMOXICILLIN [Suspect]
     Active Substance: AMOXICILLIN
     Dosage: 2 DOSAGE FORM, Q8HR
  33. AMOXICILLIN [Suspect]
     Active Substance: AMOXICILLIN
     Dosage: UNK
  34. AMOXICILLIN [Suspect]
     Active Substance: AMOXICILLIN
     Dosage: UNK
  35. CODEINE [Suspect]
     Active Substance: CODEINE
     Indication: Migraine
     Dosage: 40 MILLIGRAM
  36. CODEINE [Suspect]
     Active Substance: CODEINE
     Dosage: UNK
  37. CODEINE [Suspect]
     Active Substance: CODEINE
     Dosage: UNK
  38. CODEINE [Suspect]
     Active Substance: CODEINE
     Dosage: 4 MILLIGRAM
  39. CODEINE [Suspect]
     Active Substance: CODEINE
     Dosage: UNK
  40. ACETAMINOPHEN [Suspect]
     Active Substance: ACETAMINOPHEN
     Indication: Migraine
     Dosage: 10 MILLIGRAM
  41. ACETAMINOPHEN [Suspect]
     Active Substance: ACETAMINOPHEN
     Indication: Arthritis
     Dosage: UNK
  42. ACETAMINOPHEN [Suspect]
     Active Substance: ACETAMINOPHEN
     Dosage: UNK
  43. AMOXICILLIN TRIHYDRATE [Suspect]
     Active Substance: AMOXICILLIN
     Indication: Product used for unknown indication
     Dosage: 2 DOSAGE FORM, TID
  44. AMOXICILLIN TRIHYDRATE [Suspect]
     Active Substance: AMOXICILLIN
     Dosage: 2 DOSAGE FORM, Q8HR
  45. AMOXICILLIN TRIHYDRATE [Suspect]
     Active Substance: AMOXICILLIN
     Dosage: 2 DOSAGE FORM, QD
  46. AMOXICILLIN TRIHYDRATE [Suspect]
     Active Substance: AMOXICILLIN
     Dosage: 6 DOSAGE FORM, QD
  47. AMOXICILLIN TRIHYDRATE [Suspect]
     Active Substance: AMOXICILLIN
     Dosage: 2 DOSAGE FORM, QD
  48. AMOXICILLIN TRIHYDRATE [Suspect]
     Active Substance: AMOXICILLIN
     Dosage: UNK
  49. METRONIDAZOLE [Suspect]
     Active Substance: METRONIDAZOLE
     Indication: Migraine
     Dosage: 5 MILLIGRAM
  50. METRONIDAZOLE [Suspect]
     Active Substance: METRONIDAZOLE
     Dosage: UNK
  51. METRONIDAZOLE [Suspect]
     Active Substance: METRONIDAZOLE
     Dosage: UNK
  52. CLARITHROMYCIN [Suspect]
     Active Substance: CLARITHROMYCIN
     Indication: Product used for unknown indication
     Dosage: 1 DOSAGE FORM, BID
  53. CLARITHROMYCIN [Suspect]
     Active Substance: CLARITHROMYCIN
     Dosage: 1 DOSAGE FORM
  54. CLARITHROMYCIN [Suspect]
     Active Substance: CLARITHROMYCIN
     Dosage: 2 DOSAGE FORM, QD
  55. CLARITHROMYCIN [Suspect]
     Active Substance: CLARITHROMYCIN
     Dosage: UNK
  56. CLARITHROMYCIN [Suspect]
     Active Substance: CLARITHROMYCIN
     Dosage: UNK UNK, Q12H
  57. CLARITHROMYCIN [Suspect]
     Active Substance: CLARITHROMYCIN
     Dosage: 1 DOSAGE FORM, QD
  58. CLARITHROMYCIN [Suspect]
     Active Substance: CLARITHROMYCIN
     Dosage: UNK UNK, Q12H
  59. CLARITHROMYCIN [Suspect]
     Active Substance: CLARITHROMYCIN
     Dosage: UNK, QD
  60. CLARITHROMYCIN [Suspect]
     Active Substance: CLARITHROMYCIN
     Dosage: UNK
  61. CLARITHROMYCIN [Suspect]
     Active Substance: CLARITHROMYCIN
     Dosage: UNK UNK, Q12H
  62. CODEINE SULFATE [Suspect]
     Active Substance: CODEINE SULFATE
     Indication: Migraine
     Dosage: 40 MILLIGRAM
  63. CODEINE SULFATE [Suspect]
     Active Substance: CODEINE SULFATE
     Dosage: UNK
  64. ACETAMINOPHEN AND CODEINE [Suspect]
     Active Substance: ACETAMINOPHEN\CODEINE PHOSPHATE
     Indication: Product used for unknown indication
     Dosage: UNK
  65. AMOXICILLIN TRIHYDRATE [Suspect]
     Active Substance: AMOXICILLIN
     Indication: Product used for unknown indication
     Dosage: UNK
  66. AMOXICILLIN TRIHYDRATE [Suspect]
     Active Substance: AMOXICILLIN
     Dosage: 2 DOSAGE FORM, TID
  67. AMOXICILLIN TRIHYDRATE [Suspect]
     Active Substance: AMOXICILLIN
     Dosage: UNK
  68. AMOXICILLIN TRIHYDRATE [Suspect]
     Active Substance: AMOXICILLIN
     Dosage: UNK, QD
  69. SCOPOLAMINE [Suspect]
     Active Substance: SCOPOLAMINE
     Indication: Migraine
     Dosage: 2 DOSAGE FORM
  70. SCOPOLAMINE [Suspect]
     Active Substance: SCOPOLAMINE
     Dosage: 1 DOSAGE FORM
  71. SCOPOLAMINE [Suspect]
     Active Substance: SCOPOLAMINE
     Dosage: 10 MILLIGRAM
  72. PREDNISONE [Suspect]
     Active Substance: PREDNISONE
     Indication: Migraine
     Dosage: 2 DOSAGE FORM, QD
  73. PREDNISONE [Suspect]
     Active Substance: PREDNISONE
     Dosage: 2 DOSAGE FORM, QD
  74. PREDNISONE [Suspect]
     Active Substance: PREDNISONE
     Dosage: UNK
  75. PREDNISONE [Suspect]
     Active Substance: PREDNISONE
     Dosage: UNK
  76. SCOPOLAMINE HYDROBROMIDE [Suspect]
     Active Substance: SCOPOLAMINE HYDROBROMIDE
     Indication: Migraine
     Dosage: UNK
  77. SCOPOLAMINE HYDROBROMIDE [Suspect]
     Active Substance: SCOPOLAMINE HYDROBROMIDE
     Dosage: 10 MILLIGRAM
  78. SCOPOLAMINE HYDROBROMIDE [Suspect]
     Active Substance: SCOPOLAMINE HYDROBROMIDE
     Dosage: UNK
  79. CLARITHROMYCIN [Suspect]
     Active Substance: CLARITHROMYCIN
     Indication: Product used for unknown indication
     Dosage: UNK UNK, Q12H
  80. CLARITHROMYCIN [Suspect]
     Active Substance: CLARITHROMYCIN
     Dosage: UNK
  81. CLARITHROMYCIN [Suspect]
     Active Substance: CLARITHROMYCIN
     Dosage: UNK
  82. AMOXICILLIN SODIUM [Suspect]
     Active Substance: AMOXICILLIN SODIUM
     Indication: Product used for unknown indication
     Dosage: 2 DOSAGE FORM
  83. ACETAMINOPHEN\TRAMADOL [Suspect]
     Active Substance: ACETAMINOPHEN\TRAMADOL
     Indication: Product used for unknown indication
     Dosage: UNK
  84. SULFAMETHOXAZOLE AND TRIMETHOPRIM [Suspect]
     Active Substance: SULFAMETHOXAZOLE\TRIMETHOPRIM
     Indication: Product used for unknown indication
     Dosage: 2 DOSAGE FORM, QD
  85. SULFAMETHOXAZOLE AND TRIMETHOPRIM [Suspect]
     Active Substance: SULFAMETHOXAZOLE\TRIMETHOPRIM
     Dosage: UNK
  86. TRAMADOL HYDROCHLORIDE [Suspect]
     Active Substance: TRAMADOL HYDROCHLORIDE
     Indication: Product used for unknown indication
     Dosage: UNK
  87. TRAMADOL HYDROCHLORIDE [Suspect]
     Active Substance: TRAMADOL HYDROCHLORIDE
     Dosage: UNK
  88. TRAMADOL HYDROCHLORIDE [Suspect]
     Active Substance: TRAMADOL HYDROCHLORIDE
     Dosage: UNK
  89. TRAMADOL HYDROCHLORIDE [Suspect]
     Active Substance: TRAMADOL HYDROCHLORIDE
     Indication: Product used for unknown indication
     Dosage: UNK
  90. TRAMADOL HYDROCHLORIDE [Suspect]
     Active Substance: TRAMADOL HYDROCHLORIDE
     Dosage: UNK
  91. TRAMADOL HYDROCHLORIDE [Suspect]
     Active Substance: TRAMADOL HYDROCHLORIDE
     Dosage: UNK UNK, QD
  92. LISINOPRIL [Suspect]
     Active Substance: LISINOPRIL
     Indication: Migraine
     Dosage: 2 DOSAGE FORM
  93. LISINOPRIL [Suspect]
     Active Substance: LISINOPRIL
     Dosage: 1 DOSAGE FORM
  94. LISINOPRIL [Suspect]
     Active Substance: LISINOPRIL
     Dosage: 1 DOSAGE FORM
  95. LISINOPRIL [Suspect]
     Active Substance: LISINOPRIL
     Dosage: 1 DOSAGE FORM
  96. LISINOPRIL [Suspect]
     Active Substance: LISINOPRIL
     Dosage: UNK, QD
  97. LISINOPRIL [Suspect]
     Active Substance: LISINOPRIL
     Indication: Product used for unknown indication
     Dosage: 1 DOSAGE FORM, QD
  98. LISINOPRIL [Suspect]
     Active Substance: LISINOPRIL
     Dosage: 2 DOSAGE FORM, QD
  99. BOTULINUM TOXIN TYPE A [Suspect]
     Active Substance: BOTULINUM TOXIN TYPE A
     Indication: Product used for unknown indication
     Dosage: 200 INTERNATIONAL UNIT
  100. BOTULINUM TOXIN TYPE A [Suspect]
     Active Substance: BOTULINUM TOXIN TYPE A
     Dosage: UNK
  101. BOTULINUM TOXIN TYPE A [Suspect]
     Active Substance: BOTULINUM TOXIN TYPE A
     Dosage: UNK
  102. BOTULINUM TOXIN TYPE A [Suspect]
     Active Substance: BOTULINUM TOXIN TYPE A
     Dosage: UNK
  103. BOTULINUM TOXIN TYPE A [Suspect]
     Active Substance: BOTULINUM TOXIN TYPE A
     Dosage: UNK
  104. BOTULINUM TOXIN TYPE A [Suspect]
     Active Substance: BOTULINUM TOXIN TYPE A
     Dosage: UNK
  105. BOTULINUM TOXIN TYPE A [Suspect]
     Active Substance: BOTULINUM TOXIN TYPE A
     Dosage: UNK
  106. BOTULINUM TOXIN TYPE A [Suspect]
     Active Substance: BOTULINUM TOXIN TYPE A
     Dosage: UNK
  107. BOTULINUM TOXIN TYPE A [Suspect]
     Active Substance: BOTULINUM TOXIN TYPE A
     Indication: Product used for unknown indication
     Dosage: 200 INTERNATIONAL UNIT
  108. BOTULINUM TOXIN TYPE A [Suspect]
     Active Substance: BOTULINUM TOXIN TYPE A
     Dosage: 200 INTERNATIONAL UNIT
  109. BOTULINUM TOXIN TYPE A [Suspect]
     Active Substance: BOTULINUM TOXIN TYPE A
     Dosage: UNK
  110. CIPROFLOXACIN HYDROCHLORIDE [Suspect]
     Active Substance: CIPROFLOXACIN HYDROCHLORIDE
     Indication: Migraine
     Dosage: 1 DOSAGE FORM
  111. CIPROFLOXACIN HYDROCHLORIDE [Suspect]
     Active Substance: CIPROFLOXACIN HYDROCHLORIDE
     Dosage: 1 DOSAGE FORM, BID
  112. CIPROFLOXACIN HYDROCHLORIDE [Suspect]
     Active Substance: CIPROFLOXACIN HYDROCHLORIDE
     Dosage: 500 MILLIGRAM
  113. CIPROFLOXACIN HYDROCHLORIDE [Suspect]
     Active Substance: CIPROFLOXACIN HYDROCHLORIDE
     Dosage: UNK
  114. CIPROFLOXACIN HYDROCHLORIDE [Suspect]
     Active Substance: CIPROFLOXACIN HYDROCHLORIDE
     Dosage: UNK, QD
  115. CYMBALTA [Suspect]
     Active Substance: DULOXETINE HYDROCHLORIDE
     Indication: Product used for unknown indication
     Dosage: 2 DOSAGE FORM
  116. CYMBALTA [Suspect]
     Active Substance: DULOXETINE HYDROCHLORIDE
     Dosage: 1 DOSAGE FORM
  117. CYMBALTA [Suspect]
     Active Substance: DULOXETINE HYDROCHLORIDE
     Dosage: 2 DOSAGE FORM, QD
  118. CYMBALTA [Suspect]
     Active Substance: DULOXETINE HYDROCHLORIDE
     Dosage: UNK
  119. CYMBALTA [Suspect]
     Active Substance: DULOXETINE HYDROCHLORIDE
     Dosage: UNK, QD
  120. CYMBALTA [Suspect]
     Active Substance: DULOXETINE HYDROCHLORIDE
     Dosage: UNK
  121. CYMBALTA [Suspect]
     Active Substance: DULOXETINE HYDROCHLORIDE
     Dosage: UNK
  122. DULOXETINE HYDROCHLORIDE [Suspect]
     Active Substance: DULOXETINE HYDROCHLORIDE
     Indication: Migraine
     Dosage: UNK UNK, QD
  123. DULOXETINE HYDROCHLORIDE [Suspect]
     Active Substance: DULOXETINE HYDROCHLORIDE
     Dosage: UNK
  124. DULOXETINE HYDROCHLORIDE [Suspect]
     Active Substance: DULOXETINE HYDROCHLORIDE
     Dosage: 600 MILLIGRAM
  125. DULOXETINE HYDROCHLORIDE [Suspect]
     Active Substance: DULOXETINE HYDROCHLORIDE
     Dosage: 60 MILLIGRAM
  126. DULOXETINE HYDROCHLORIDE [Suspect]
     Active Substance: DULOXETINE HYDROCHLORIDE
     Dosage: 600 MILLIGRAM
  127. DULOXETINE HYDROCHLORIDE [Suspect]
     Active Substance: DULOXETINE HYDROCHLORIDE
     Dosage: UNK
  128. DULOXETINE HYDROCHLORIDE [Suspect]
     Active Substance: DULOXETINE HYDROCHLORIDE
     Indication: Migraine
     Dosage: 60 MILLIGRAM
  129. DULOXETINE HYDROCHLORIDE [Suspect]
     Active Substance: DULOXETINE HYDROCHLORIDE
     Dosage: 600 MILLIGRAM
  130. DULOXETINE HYDROCHLORIDE [Suspect]
     Active Substance: DULOXETINE HYDROCHLORIDE
     Dosage: UNK
  131. DULOXETINE HYDROCHLORIDE [Suspect]
     Active Substance: DULOXETINE HYDROCHLORIDE
     Dosage: UNK
  132. ESCITALOPRAM OXALATE [Suspect]
     Active Substance: ESCITALOPRAM OXALATE
     Indication: Migraine
     Dosage: 10 MILLIGRAM
  133. ESCITALOPRAM OXALATE [Suspect]
     Active Substance: ESCITALOPRAM OXALATE
     Dosage: 1 DOSAGE FORM, QD
  134. ESCITALOPRAM OXALATE [Suspect]
     Active Substance: ESCITALOPRAM OXALATE
     Dosage: 10 MILLIGRAM
  135. ESCITALOPRAM OXALATE [Suspect]
     Active Substance: ESCITALOPRAM OXALATE
     Dosage: UNK
  136. ESCITALOPRAM [Suspect]
     Active Substance: ESCITALOPRAM OXALATE
     Indication: Migraine
     Dosage: 10 MILLIGRAM
  137. ESCITALOPRAM [Suspect]
     Active Substance: ESCITALOPRAM OXALATE
     Dosage: UNK
  138. ESCITALOPRAM [Suspect]
     Active Substance: ESCITALOPRAM OXALATE
     Dosage: UNK
  139. ESCITALOPRAM [Suspect]
     Active Substance: ESCITALOPRAM OXALATE
     Dosage: 10 MILLIGRAM
  140. ESOMEPRAZOLE MAGNESIUM [Suspect]
     Active Substance: ESOMEPRAZOLE MAGNESIUM
     Indication: Migraine
     Dosage: 40 MILLIGRAM
  141. ESOMEPRAZOLE MAGNESIUM [Suspect]
     Active Substance: ESOMEPRAZOLE MAGNESIUM
     Dosage: UNK
  142. FLUCONAZOLE [Suspect]
     Active Substance: FLUCONAZOLE
     Indication: Migraine
     Dosage: 1 DOSAGE FORM, QD
  143. FLUCONAZOLE [Suspect]
     Active Substance: FLUCONAZOLE
     Dosage: 1 DOSAGE FORM, QD
  144. FLUCONAZOLE [Suspect]
     Active Substance: FLUCONAZOLE
     Dosage: 40 MILLIGRAM
  145. FLUCONAZOLE [Suspect]
     Active Substance: FLUCONAZOLE
     Dosage: UNK
  146. FLUCONAZOLE [Suspect]
     Active Substance: FLUCONAZOLE
     Dosage: UNK
  147. HYDROMORPHONE HYDROCHLORIDE [Suspect]
     Active Substance: HYDROMORPHONE HYDROCHLORIDE
     Indication: Migraine
     Dosage: 2 DOSAGE FORM, QD
  148. HYDROMORPHONE HYDROCHLORIDE [Suspect]
     Active Substance: HYDROMORPHONE HYDROCHLORIDE
     Dosage: 1 DOSAGE FORM, Q12H
  149. HYDROMORPHONE HYDROCHLORIDE [Suspect]
     Active Substance: HYDROMORPHONE HYDROCHLORIDE
     Dosage: 1 DOSAGE FORM, Q12H
  150. HYDROMORPHONE HYDROCHLORIDE [Suspect]
     Active Substance: HYDROMORPHONE HYDROCHLORIDE
     Dosage: 1 DOSAGE FORM, Q12H
  151. HYDROMORPHONE HYDROCHLORIDE [Suspect]
     Active Substance: HYDROMORPHONE HYDROCHLORIDE
     Dosage: 1 DOSAGE FORM, Q12H
  152. HYDROMORPHONE HYDROCHLORIDE [Suspect]
     Active Substance: HYDROMORPHONE HYDROCHLORIDE
     Dosage: 1 DOSAGE FORM, Q12H
  153. HYDROMORPHONE HYDROCHLORIDE [Suspect]
     Active Substance: HYDROMORPHONE HYDROCHLORIDE
     Dosage: 1 DOSAGE FORM, Q12H
  154. HYDROMORPHONE HYDROCHLORIDE [Suspect]
     Active Substance: HYDROMORPHONE HYDROCHLORIDE
     Dosage: 1 DOSAGE FORM, Q12H
  155. HYDROMORPHONE HYDROCHLORIDE [Suspect]
     Active Substance: HYDROMORPHONE HYDROCHLORIDE
     Dosage: 1 DOSAGE FORM, Q12H
  156. HYDROMORPHONE HYDROCHLORIDE [Suspect]
     Active Substance: HYDROMORPHONE HYDROCHLORIDE
     Dosage: 1 DOSAGE FORM, Q12H
  157. HYDROMORPHONE HYDROCHLORIDE [Suspect]
     Active Substance: HYDROMORPHONE HYDROCHLORIDE
     Dosage: 1 DOSAGE FORM, Q12H
  158. HYDROMORPHONE HYDROCHLORIDE [Suspect]
     Active Substance: HYDROMORPHONE HYDROCHLORIDE
     Dosage: UNK
  159. BUTYLSCOPOLAMINE BROMIDE [Suspect]
     Active Substance: BUTYLSCOPOLAMINE BROMIDE
     Indication: Migraine
     Dosage: 1 DOSAGE FORM
  160. BUTYLSCOPOLAMINE BROMIDE [Suspect]
     Active Substance: BUTYLSCOPOLAMINE BROMIDE
     Dosage: 2 DOSAGE FORM
  161. BUTYLSCOPOLAMINE BROMIDE [Suspect]
     Active Substance: BUTYLSCOPOLAMINE BROMIDE
     Dosage: 10 MILLIGRAM
  162. BUTYLSCOPOLAMINE BROMIDE [Suspect]
     Active Substance: BUTYLSCOPOLAMINE BROMIDE
     Dosage: 1 DOSAGE FORM, QD
  163. BUTYLSCOPOLAMINE BROMIDE [Suspect]
     Active Substance: BUTYLSCOPOLAMINE BROMIDE
     Dosage: 2 DOSAGE FORM
  164. BUTYLSCOPOLAMINE BROMIDE [Suspect]
     Active Substance: BUTYLSCOPOLAMINE BROMIDE
     Dosage: 10 MILLIGRAM
  165. INDOMETHACIN [Suspect]
     Active Substance: INDOMETHACIN
     Indication: Migraine
     Dosage: 1 DOSAGE FORM
  166. INDOMETHACIN [Suspect]
     Active Substance: INDOMETHACIN
     Dosage: 2 DOSAGE FORM
  167. INDOMETHACIN [Suspect]
     Active Substance: INDOMETHACIN
     Dosage: 1 DOSAGE FORM, Q12H
  168. INDOMETHACIN [Suspect]
     Active Substance: INDOMETHACIN
     Dosage: UNK
  169. INDOMETHACIN [Suspect]
     Active Substance: INDOMETHACIN
     Dosage: UNK
  170. METOCLOPRAMIDE [Suspect]
     Active Substance: METOCLOPRAMIDE
     Indication: Migraine
     Dosage: 5 MILLIGRAM
  171. METOCLOPRAMIDE [Suspect]
     Active Substance: METOCLOPRAMIDE
     Dosage: 10 MILLIGRAM
  172. METOCLOPRAMIDE [Suspect]
     Active Substance: METOCLOPRAMIDE
     Dosage: 5 MILLIGRAM
  173. METOCLOPRAMIDE [Suspect]
     Active Substance: METOCLOPRAMIDE
     Dosage: UNK
  174. METOCLOPRAMIDE HYDROCHLORIDE [Suspect]
     Active Substance: METOCLOPRAMIDE HYDROCHLORIDE
     Indication: Product used for unknown indication
     Dosage: 10 MILLIGRAM
  175. METOCLOPRAMIDE HYDROCHLORIDE [Suspect]
     Active Substance: METOCLOPRAMIDE HYDROCHLORIDE
     Dosage: 5 MILLIGRAM
  176. METOCLOPRAMIDE HYDROCHLORIDE [Suspect]
     Active Substance: METOCLOPRAMIDE HYDROCHLORIDE
     Dosage: UNK
  177. MOMETASONE FUROATE [Suspect]
     Active Substance: MOMETASONE FUROATE
     Indication: Migraine
     Dosage: 6 DOSAGE FORM
  178. MOMETASONE FUROATE [Suspect]
     Active Substance: MOMETASONE FUROATE
     Dosage: 2 DOSAGE FORM
  179. MOMETASONE FUROATE [Suspect]
     Active Substance: MOMETASONE FUROATE
     Dosage: 2 DOSAGE FORM, TID
  180. MOMETASONE FUROATE [Suspect]
     Active Substance: MOMETASONE FUROATE
     Dosage: 6 DOSAGE FORM, TID
  181. MOMETASONE FUROATE [Suspect]
     Active Substance: MOMETASONE FUROATE
     Dosage: 2 DOSAGE FORM, Q12H
  182. MOMETASONE FUROATE [Suspect]
     Active Substance: MOMETASONE FUROATE
     Dosage: 1 DOSAGE FORM, QD
  183. MOMETASONE FUROATE [Suspect]
     Active Substance: MOMETASONE FUROATE
     Dosage: UNK, Q12H
  184. MOMETASONE FUROATE [Suspect]
     Active Substance: MOMETASONE FUROATE
     Dosage: UNK
  185. MOMETASONE FUROATE [Suspect]
     Active Substance: MOMETASONE FUROATE
     Dosage: UNK
  186. MOMETASONE FUROATE [Suspect]
     Active Substance: MOMETASONE FUROATE
     Dosage: UNK
  187. MOMETASONE FUROATE [Suspect]
     Active Substance: MOMETASONE FUROATE
     Dosage: UNK
  188. MOMETASONE FUROATE [Suspect]
     Active Substance: MOMETASONE FUROATE
     Dosage: 2 DOSAGE FORM, Q12H
  189. MOMETASONE FUROATE [Suspect]
     Active Substance: MOMETASONE FUROATE
     Dosage: UNK
  190. AZITHROMYCIN ANHYDROUS [Suspect]
     Active Substance: AZITHROMYCIN ANHYDROUS
     Indication: Migraine
     Dosage: 500 MILLIGRAM
  191. AZITHROMYCIN ANHYDROUS [Suspect]
     Active Substance: AZITHROMYCIN ANHYDROUS
     Dosage: UNK
  192. AZITHROMYCIN ANHYDROUS [Suspect]
     Active Substance: AZITHROMYCIN ANHYDROUS
     Dosage: UNK, QD
  193. PROPRANOLOL [Suspect]
     Active Substance: PROPRANOLOL HYDROCHLORIDE
     Indication: Migraine
     Dosage: 80 MILLIGRAM
  194. PROPRANOLOL [Suspect]
     Active Substance: PROPRANOLOL HYDROCHLORIDE
     Dosage: 40 MILLIGRAM
  195. PROPRANOLOL [Suspect]
     Active Substance: PROPRANOLOL HYDROCHLORIDE
     Dosage: 80 MILLIGRAM, Q6MONTHS
  196. PROPRANOLOL [Suspect]
     Active Substance: PROPRANOLOL HYDROCHLORIDE
     Dosage: UNK
  197. PROPRANOLOL [Suspect]
     Active Substance: PROPRANOLOL HYDROCHLORIDE
     Dosage: 80 MILLIGRAM
  198. PROPRANOLOL [Suspect]
     Active Substance: PROPRANOLOL HYDROCHLORIDE
     Dosage: 40 MILLIGRAM, QD
  199. PROPRANOLOL [Suspect]
     Active Substance: PROPRANOLOL HYDROCHLORIDE
     Dosage: UNK
  200. PROPRANOLOL [Suspect]
     Active Substance: PROPRANOLOL HYDROCHLORIDE
     Dosage: 40 MILLIGRAM
  201. PROPRANOLOL [Suspect]
     Active Substance: PROPRANOLOL HYDROCHLORIDE
     Dosage: 40 MILLIGRAM
  202. RABEPRAZOLE SODIUM [Suspect]
     Active Substance: RABEPRAZOLE SODIUM
     Indication: Migraine
     Dosage: 1 DOSAGE FORM
  203. RABEPRAZOLE SODIUM [Suspect]
     Active Substance: RABEPRAZOLE SODIUM
     Dosage: 2 DOSAGE FORM
  204. RABEPRAZOLE SODIUM [Suspect]
     Active Substance: RABEPRAZOLE SODIUM
     Dosage: 10 MILLIGRAM
  205. RABEPRAZOLE SODIUM [Suspect]
     Active Substance: RABEPRAZOLE SODIUM
     Dosage: 1 DOSAGE FORM, Q12H
  206. RABEPRAZOLE SODIUM [Suspect]
     Active Substance: RABEPRAZOLE SODIUM
     Dosage: 2 DOSAGE FORM, QD
  207. RABEPRAZOLE SODIUM [Suspect]
     Active Substance: RABEPRAZOLE SODIUM
     Dosage: UNK
  208. RIZATRIPTAN BENZOATE [Suspect]
     Active Substance: RIZATRIPTAN BENZOATE
     Indication: Migraine
     Dosage: 10 MILLIGRAM
  209. RIZATRIPTAN BENZOATE [Suspect]
     Active Substance: RIZATRIPTAN BENZOATE
     Dosage: 1 DOSAGE FORM, QD
  210. RIZATRIPTAN BENZOATE [Suspect]
     Active Substance: RIZATRIPTAN BENZOATE
     Dosage: 10 MILLIGRAM, QD
  211. ALBUTEROL [Suspect]
     Active Substance: ALBUTEROL
     Indication: Product used for unknown indication
     Dosage: 1 DOSAGE FORM
  212. ALBUTEROL [Suspect]
     Active Substance: ALBUTEROL
     Dosage: 1 DOSAGE FORM, QD
  213. ALBUTEROL [Suspect]
     Active Substance: ALBUTEROL
     Dosage: 4 DOSAGE FORM
  214. ALBUTEROL [Suspect]
     Active Substance: ALBUTEROL
     Dosage: UNK
  215. ALBUTEROL [Suspect]
     Active Substance: ALBUTEROL
     Dosage: UNK
  216. ALBUTEROL [Suspect]
     Active Substance: ALBUTEROL
     Dosage: UNK
  217. ALBUTEROL [Suspect]
     Active Substance: ALBUTEROL
     Dosage: UNK
  218. ALBUTEROL [Suspect]
     Active Substance: ALBUTEROL
     Dosage: UNK
  219. SERTRALINE HYDROCHLORIDE [Suspect]
     Active Substance: SERTRALINE HYDROCHLORIDE
     Indication: Migraine
     Dosage: 50 MILLIGRAM
  220. SERTRALINE HYDROCHLORIDE [Suspect]
     Active Substance: SERTRALINE HYDROCHLORIDE
     Dosage: 500 MILLIGRAM
  221. SERTRALINE HYDROCHLORIDE [Suspect]
     Active Substance: SERTRALINE HYDROCHLORIDE
     Dosage: UNK
  222. SERTRALINE HYDROCHLORIDE [Suspect]
     Active Substance: SERTRALINE HYDROCHLORIDE
     Dosage: 50 MILLIGRAM
  223. SERTRALINE HYDROCHLORIDE [Suspect]
     Active Substance: SERTRALINE HYDROCHLORIDE
     Dosage: UNK
  224. SUMATRIPTAN [Suspect]
     Active Substance: SUMATRIPTAN
     Indication: Migraine
     Dosage: 100 MILLIGRAM
  225. SUMATRIPTAN [Suspect]
     Active Substance: SUMATRIPTAN
     Dosage: UNK
  226. SUMATRIPTAN [Suspect]
     Active Substance: SUMATRIPTAN
     Dosage: 100 MILLIGRAM, QD
  227. SUMATRIPTAN SUCCINATE [Suspect]
     Active Substance: SUMATRIPTAN SUCCINATE
     Indication: Migraine
     Dosage: 60 MILLIGRAM
  228. SUMATRIPTAN SUCCINATE [Suspect]
     Active Substance: SUMATRIPTAN SUCCINATE
     Dosage: 100 MILLIGRAM
  229. SUMATRIPTAN SUCCINATE [Suspect]
     Active Substance: SUMATRIPTAN SUCCINATE
     Dosage: UNK
  230. DULOXETINE [Suspect]
     Active Substance: DULOXETINE
     Indication: Migraine
     Dosage: 60 MILLIGRAM
  231. TOPIRAMATE [Suspect]
     Active Substance: TOPIRAMATE
     Indication: Migraine
     Dosage: 25 MILLIGRAM
  232. TOPIRAMATE [Suspect]
     Active Substance: TOPIRAMATE
     Dosage: 25 MILLIGRAM
  233. TOPIRAMATE [Suspect]
     Active Substance: TOPIRAMATE
     Dosage: UNK
  234. TRIMETHOPRIM [Suspect]
     Active Substance: TRIMETHOPRIM
     Indication: Product used for unknown indication
     Dosage: 6 DOSAGE FORM
  235. TRIMETHOPRIM [Suspect]
     Active Substance: TRIMETHOPRIM
     Dosage: UNK
  236. TRIMETHOPRIM [Suspect]
     Active Substance: TRIMETHOPRIM
     Dosage: UNK
  237. ZOPICLONE [Suspect]
     Active Substance: ZOPICLONE
     Indication: Migraine
     Dosage: 1 DOSAGE FORM, QD
  238. ZOPICLONE [Suspect]
     Active Substance: ZOPICLONE
     Dosage: 5 DOSAGE FORM
  239. ZOPICLONE [Suspect]
     Active Substance: ZOPICLONE
     Dosage: 50 MILLIGRAM
  240. ZOPICLONE [Suspect]
     Active Substance: ZOPICLONE
     Dosage: 1 DOSAGE FORM
  241. ZOPICLONE [Suspect]
     Active Substance: ZOPICLONE
     Dosage: 1 DOSAGE FORM, QD
  242. ZOPICLONE [Suspect]
     Active Substance: ZOPICLONE
     Dosage: 5 MILLIGRAM
  243. ZOPICLONE [Suspect]
     Active Substance: ZOPICLONE
     Dosage: 1 DOSAGE FORM, QD
  244. ZOPICLONE [Suspect]
     Active Substance: ZOPICLONE
     Dosage: 1 DOSAGE FORM, QD
  245. ZOPICLONE [Suspect]
     Active Substance: ZOPICLONE
     Dosage: 1 DOSAGE FORM, QD
  246. ZOPICLONE [Suspect]
     Active Substance: ZOPICLONE
     Dosage: 1 DOSAGE FORM, QD
  247. ZOPICLONE [Suspect]
     Active Substance: ZOPICLONE
     Dosage: 1 DOSAGE FORM, QD
  248. ZOPICLONE [Suspect]
     Active Substance: ZOPICLONE
     Dosage: 1 DOSAGE FORM, QD
  249. ZOPICLONE [Suspect]
     Active Substance: ZOPICLONE
     Dosage: 1 DOSAGE FORM, QD
  250. ZOPICLONE [Suspect]
     Active Substance: ZOPICLONE
     Dosage: 1 DOSAGE FORM, QD
  251. ZOPICLONE [Suspect]
     Active Substance: ZOPICLONE
     Dosage: 1 DOSAGE FORM, QD
  252. ZOPICLONE [Suspect]
     Active Substance: ZOPICLONE
     Dosage: 1 DOSAGE FORM, QD
  253. ZOPICLONE [Suspect]
     Active Substance: ZOPICLONE
     Dosage: 1 DOSAGE FORM, QD
  254. ZOPICLONE [Suspect]
     Active Substance: ZOPICLONE
     Dosage: 5 MILLIGRAM
  255. ZOPICLONE [Suspect]
     Active Substance: ZOPICLONE
     Dosage: 1 DOSAGE FORM, QD
  256. ZOPICLONE [Suspect]
     Active Substance: ZOPICLONE
     Dosage: 1 DOSAGE FORM, QD
  257. ZOPICLONE [Suspect]
     Active Substance: ZOPICLONE
     Dosage: 1 DOSAGE FORM, QD
  258. ZOPICLONE [Suspect]
     Active Substance: ZOPICLONE
     Dosage: 1 DOSAGE FORM, QD
  259. ZOPICLONE [Suspect]
     Active Substance: ZOPICLONE
     Dosage: 1 DOSAGE FORM, QD
  260. ZOPICLONE [Suspect]
     Active Substance: ZOPICLONE
     Dosage: 1 DOSAGE FORM
  261. ZOPICLONE [Suspect]
     Active Substance: ZOPICLONE
     Dosage: 1 DOSAGE FORM, QD
  262. ZOPICLONE [Suspect]
     Active Substance: ZOPICLONE
     Dosage: 1 DOSAGE FORM, QD
  263. ZOPICLONE [Suspect]
     Active Substance: ZOPICLONE
     Dosage: 1 DOSAGE FORM, QD
  264. ZOPICLONE [Suspect]
     Active Substance: ZOPICLONE
     Dosage: 1 DOSAGE FORM, QD
  265. ZOPICLONE [Suspect]
     Active Substance: ZOPICLONE
     Dosage: 1 DOSAGE FORM, QD
  266. ZOPICLONE [Suspect]
     Active Substance: ZOPICLONE
     Dosage: 1 DOSAGE FORM, QD
  267. ZOPICLONE [Suspect]
     Active Substance: ZOPICLONE
     Dosage: 1 DOSAGE FORM, QD
  268. TRAMADOL HYDROCHLORIDE [Suspect]
     Active Substance: TRAMADOL HYDROCHLORIDE
     Indication: Product used for unknown indication
     Dosage: UNK
  269. LISINOPRIL [Suspect]
     Active Substance: LISINOPRIL
     Indication: Migraine
     Dosage: 1 DOSAGE FORM, QD
  270. LISINOPRIL [Suspect]
     Active Substance: LISINOPRIL
     Dosage: 1 DOSAGE FORM, QD
  271. LISINOPRIL [Suspect]
     Active Substance: LISINOPRIL
     Dosage: UNK
  272. LISINOPRIL [Suspect]
     Active Substance: LISINOPRIL
     Dosage: 1 DOSAGE FORM, QD
  273. LISINOPRIL [Suspect]
     Active Substance: LISINOPRIL
     Dosage: 1 DOSAGE FORM, QD
  274. MAXALT [Suspect]
     Active Substance: RIZATRIPTAN BENZOATE
     Indication: Migraine
     Dosage: UNK
  275. MAXALT [Suspect]
     Active Substance: RIZATRIPTAN BENZOATE
     Dosage: 10 MILLIGRAM
  276. MAXALT [Suspect]
     Active Substance: RIZATRIPTAN BENZOATE
     Dosage: UNK
  277. MAXALT [Suspect]
     Active Substance: RIZATRIPTAN BENZOATE
     Dosage: UNK
  278. ZOLMITRIPTAN [Suspect]
     Active Substance: ZOLMITRIPTAN
     Indication: Product used for unknown indication
     Dosage: UNK
  279. ZOLMITRIPTAN [Suspect]
     Active Substance: ZOLMITRIPTAN
     Dosage: UNK
  280. LISINOPRIL [Suspect]
     Active Substance: LISINOPRIL
     Indication: Migraine
     Dosage: 1 DOSAGE FORM, QD
  281. LISINOPRIL [Suspect]
     Active Substance: LISINOPRIL
     Dosage: UNK, QD
  282. LISINOPRIL [Suspect]
     Active Substance: LISINOPRIL
     Dosage: UNK, QD
  283. LISINOPRIL [Suspect]
     Active Substance: LISINOPRIL
     Dosage: 20 MILLIGRAM
  284. SERTRALINE [Suspect]
     Active Substance: SERTRALINE HYDROCHLORIDE
     Indication: Migraine
     Dosage: UNK
  285. SERTRALINE [Suspect]
     Active Substance: SERTRALINE HYDROCHLORIDE
     Dosage: 50 MILLIGRAM
  286. SERTRALINE [Suspect]
     Active Substance: SERTRALINE HYDROCHLORIDE
     Dosage: UNK
  287. ESOMEPRAZOLE [Suspect]
     Active Substance: ESOMEPRAZOLE
     Indication: Migraine
     Dosage: 40 MILLIGRAM
  288. ESOMEPRAZOLE [Suspect]
     Active Substance: ESOMEPRAZOLE
     Dosage: 10 MILLIGRAM
  289. ESOMEPRAZOLE [Suspect]
     Active Substance: ESOMEPRAZOLE
     Dosage: 40 MILLIGRAM
  290. ZOPICLONE [Suspect]
     Active Substance: ZOPICLONE
     Indication: Migraine
     Dosage: UNK UNK, QD
  291. ZOPICLONE [Suspect]
     Active Substance: ZOPICLONE
     Dosage: UNK UNK, QD
  292. ZOPICLONE [Suspect]
     Active Substance: ZOPICLONE
     Dosage: UNK UNK, QD
  293. ZOPICLONE [Suspect]
     Active Substance: ZOPICLONE
     Dosage: UNK UNK, QD
  294. ZOPICLONE [Suspect]
     Active Substance: ZOPICLONE
     Dosage: UNK UNK, QD
  295. ZOPICLONE [Suspect]
     Active Substance: ZOPICLONE
     Dosage: UNK UNK, QD
  296. ZOPICLONE [Suspect]
     Active Substance: ZOPICLONE
     Dosage: UNK UNK, QD
  297. ZOPICLONE [Suspect]
     Active Substance: ZOPICLONE
     Dosage: UNK UNK, QD
  298. ZOPICLONE [Suspect]
     Active Substance: ZOPICLONE
     Dosage: UNK UNK, QD
  299. ZOPICLONE [Suspect]
     Active Substance: ZOPICLONE
     Dosage: UNK UNK, QD
  300. ZOPICLONE [Suspect]
     Active Substance: ZOPICLONE
     Dosage: UNK UNK, QD
  301. ZOPICLONE [Suspect]
     Active Substance: ZOPICLONE
     Dosage: UNK UNK, QD
  302. ZOPICLONE [Suspect]
     Active Substance: ZOPICLONE
     Dosage: UNK UNK, QD
  303. ZOPICLONE [Suspect]
     Active Substance: ZOPICLONE
     Dosage: UNK UNK, QD
  304. ZOPICLONE [Suspect]
     Active Substance: ZOPICLONE
     Dosage: UNK UNK, QD
  305. ZOPICLONE [Suspect]
     Active Substance: ZOPICLONE
     Dosage: UNK UNK, QD
  306. ZOPICLONE [Suspect]
     Active Substance: ZOPICLONE
     Dosage: UNK UNK, QD
  307. ZOPICLONE [Suspect]
     Active Substance: ZOPICLONE
     Dosage: UNK UNK, QD
  308. ZOPICLONE [Suspect]
     Active Substance: ZOPICLONE
     Dosage: UNK, QD
  309. ZOPICLONE [Suspect]
     Active Substance: ZOPICLONE
     Dosage: 5 MILLIGRAM, QD
  310. ZOPICLONE [Suspect]
     Active Substance: ZOPICLONE
     Dosage: 5 MILLIGRAM
  311. ZOPICLONE [Suspect]
     Active Substance: ZOPICLONE
     Dosage: 50 MILLIGRAM
  312. ZOPICLONE [Suspect]
     Active Substance: ZOPICLONE
     Dosage: 5 MILLIGRAM
  313. ZOPICLONE [Suspect]
     Active Substance: ZOPICLONE
     Dosage: UNK
  314. INDOMETHACIN [Suspect]
     Active Substance: INDOMETHACIN
     Indication: Migraine
     Dosage: 1 DOSAGE FORM
  315. INDOMETHACIN [Suspect]
     Active Substance: INDOMETHACIN
     Dosage: 1 DOSAGE FORM, Q12H
  316. INDOMETHACIN [Suspect]
     Active Substance: INDOMETHACIN
     Dosage: 1 DOSAGE FORM
  317. INDOMETHACIN [Suspect]
     Active Substance: INDOMETHACIN
     Dosage: 1 DOSAGE FORM
  318. INDOMETHACIN [Suspect]
     Active Substance: INDOMETHACIN
     Dosage: 1 DOSAGE FORM
  319. INDOMETHACIN [Suspect]
     Active Substance: INDOMETHACIN
     Dosage: 1 DOSAGE FORM
  320. INDOMETHACIN [Suspect]
     Active Substance: INDOMETHACIN
     Dosage: 1 DOSAGE FORM
  321. INDOMETHACIN [Suspect]
     Active Substance: INDOMETHACIN
     Dosage: 1 DOSAGE FORM
  322. INDOMETHACIN [Suspect]
     Active Substance: INDOMETHACIN
     Dosage: 1 DOSAGE FORM
  323. INDOMETHACIN [Suspect]
     Active Substance: INDOMETHACIN
     Dosage: 1 DOSAGE FORM
  324. INDOMETHACIN [Suspect]
     Active Substance: INDOMETHACIN
     Dosage: 1 DOSAGE FORM
  325. INDOMETHACIN [Suspect]
     Active Substance: INDOMETHACIN
     Dosage: 1 DOSAGE FORM, Q12H
  326. INDOMETHACIN [Suspect]
     Active Substance: INDOMETHACIN
     Dosage: 1 DOSAGE FORM
  327. INDOMETHACIN [Suspect]
     Active Substance: INDOMETHACIN
     Dosage: 1 DOSAGE FORM
  328. INDOMETHACIN [Suspect]
     Active Substance: INDOMETHACIN
     Dosage: 1 DOSAGE FORM, Q12H
  329. INDOMETHACIN [Suspect]
     Active Substance: INDOMETHACIN
     Dosage: 1 DOSAGE FORM, Q12H
  330. INDOMETHACIN [Suspect]
     Active Substance: INDOMETHACIN
     Dosage: 1 DOSAGE FORM, Q12H
  331. INDOMETHACIN [Suspect]
     Active Substance: INDOMETHACIN
     Dosage: 1 DOSAGE FORM, Q12H
  332. INDOMETHACIN [Suspect]
     Active Substance: INDOMETHACIN
     Dosage: 1 DOSAGE FORM, Q12H
  333. INDOMETHACIN [Suspect]
     Active Substance: INDOMETHACIN
     Dosage: 1 DOSAGE FORM, Q12H
  334. INDOMETHACIN [Suspect]
     Active Substance: INDOMETHACIN
     Dosage: 1 DOSAGE FORM, Q12H
  335. INDOMETHACIN [Suspect]
     Active Substance: INDOMETHACIN
     Dosage: 1 DOSAGE FORM, Q12H
  336. INDOMETHACIN [Suspect]
     Active Substance: INDOMETHACIN
     Dosage: 1 DOSAGE FORM
  337. INDOMETHACIN [Suspect]
     Active Substance: INDOMETHACIN
     Dosage: UNK
  338. INDOMETHACIN [Suspect]
     Active Substance: INDOMETHACIN
     Dosage: UNK
  339. INDOMETHACIN [Suspect]
     Active Substance: INDOMETHACIN
     Dosage: UNK
  340. INDOMETHACIN [Suspect]
     Active Substance: INDOMETHACIN
     Dosage: UNK
  341. CIPRO [Suspect]
     Active Substance: CIPROFLOXACIN HYDROCHLORIDE
     Indication: Migraine
     Dosage: UNK, QD
  342. CIPRO [Suspect]
     Active Substance: CIPROFLOXACIN HYDROCHLORIDE
     Dosage: 1 DOSAGE FORM, QD
  343. CIPRO [Suspect]
     Active Substance: CIPROFLOXACIN HYDROCHLORIDE
     Dosage: UNK
  344. CIPRO [Suspect]
     Active Substance: CIPROFLOXACIN HYDROCHLORIDE
     Dosage: 1 DOSAGE FORM, QD
  345. CIPRO [Suspect]
     Active Substance: CIPROFLOXACIN HYDROCHLORIDE
     Indication: Migraine
     Dosage: UNK UNK, QD
  346. MAXALT [Suspect]
     Active Substance: RIZATRIPTAN BENZOATE
     Indication: Migraine
     Dosage: UNK
  347. MOMETASONE FUROATE [Suspect]
     Active Substance: MOMETASONE FUROATE
     Indication: Migraine
     Dosage: UNK UNK,
  348. MOMETASONE FUROATE [Suspect]
     Active Substance: MOMETASONE FUROATE
     Dosage: 2 DOSAGE FORM, Q12H
  349. HYDROMORPHONE [Suspect]
     Active Substance: HYDROMORPHONE
     Indication: Migraine
     Dosage: 1 DOSAGE FORM, Q12H
  350. HYDROMORPHONE [Suspect]
     Active Substance: HYDROMORPHONE
     Dosage: 1 DOSAGE FORM
  351. HYDROMORPHONE [Suspect]
     Active Substance: HYDROMORPHONE
     Dosage: 1 DOSAGE FORM
  352. HYDROMORPHONE [Suspect]
     Active Substance: HYDROMORPHONE
     Dosage: 1 DOSAGE FORM
  353. HYDROMORPHONE [Suspect]
     Active Substance: HYDROMORPHONE
     Dosage: 1 DOSAGE FORM
  354. HYDROMORPHONE [Suspect]
     Active Substance: HYDROMORPHONE
     Dosage: 1 DOSAGE FORM
  355. HYDROMORPHONE [Suspect]
     Active Substance: HYDROMORPHONE
     Dosage: 1 DOSAGE FORM
  356. HYDROMORPHONE [Suspect]
     Active Substance: HYDROMORPHONE
     Dosage: 1 DOSAGE FORM
  357. HYDROMORPHONE [Suspect]
     Active Substance: HYDROMORPHONE
     Dosage: 1 DOSAGE FORM
  358. HYDROMORPHONE [Suspect]
     Active Substance: HYDROMORPHONE
     Dosage: 1 DOSAGE FORM
  359. HYDROMORPHONE [Suspect]
     Active Substance: HYDROMORPHONE
     Dosage: 1 DOSAGE FORM
  360. HYDROMORPHONE [Suspect]
     Active Substance: HYDROMORPHONE
     Dosage: UNK
  361. HYDROMORPHONE [Suspect]
     Active Substance: HYDROMORPHONE
     Dosage: UNK
  362. HYDROMORPHONE [Suspect]
     Active Substance: HYDROMORPHONE
     Dosage: UNK, BID
  363. HYDROMORPHONE [Suspect]
     Active Substance: HYDROMORPHONE
     Dosage: UNK, Q12H
  364. HYDROMORPHONE [Suspect]
     Active Substance: HYDROMORPHONE
     Dosage: 1 DOSAGE FORM, Q12H
  365. HYDROMORPHONE [Suspect]
     Active Substance: HYDROMORPHONE
     Dosage: UNK
  366. CIPROFLOXACIN LACTATE [Suspect]
     Active Substance: CIPROFLOXACIN LACTATE
     Indication: Migraine
     Dosage: UNK
  367. CIPROFLOXACIN LACTATE [Suspect]
     Active Substance: CIPROFLOXACIN LACTATE
     Dosage: 1 DOSAGE FORM, QD
  368. CIPROFLOXACIN LACTATE [Suspect]
     Active Substance: CIPROFLOXACIN LACTATE
     Dosage: 1 DOSAGE FORM, QD
  369. CIPROFLOXACIN LACTATE [Suspect]
     Active Substance: CIPROFLOXACIN LACTATE
     Dosage: 500 MILLIGRAM, QD
  370. CIPROFLOXACIN LACTATE [Suspect]
     Active Substance: CIPROFLOXACIN LACTATE
     Dosage: 1 DOSAGE FORM
  371. CIPROFLOXACIN LACTATE [Suspect]
     Active Substance: CIPROFLOXACIN LACTATE
     Dosage: 1 DOSAGE FORM, QD
  372. CIPROFLOXACIN LACTATE [Suspect]
     Active Substance: CIPROFLOXACIN LACTATE
     Dosage: UNK, Q12H
  373. CIPROFLOXACIN LACTATE [Suspect]
     Active Substance: CIPROFLOXACIN LACTATE
     Dosage: 500 MILLIGRAM
  374. CIPROFLOXACIN LACTATE [Suspect]
     Active Substance: CIPROFLOXACIN LACTATE
     Dosage: 1 DOSAGE FORM, QD
  375. CIPROFLOXACIN LACTATE [Suspect]
     Active Substance: CIPROFLOXACIN LACTATE
     Dosage: UNK
  376. RABEPRAZOLE [Suspect]
     Active Substance: RABEPRAZOLE
     Indication: Migraine
     Dosage: 1 DOSAGE FORM, Q12H
  377. RABEPRAZOLE [Suspect]
     Active Substance: RABEPRAZOLE
     Dosage: 1 DOSAGE FORM
  378. RABEPRAZOLE [Suspect]
     Active Substance: RABEPRAZOLE
     Dosage: 1 DOSAGE FORM
  379. RABEPRAZOLE [Suspect]
     Active Substance: RABEPRAZOLE
     Dosage: 1 DOSAGE FORM
  380. RABEPRAZOLE [Suspect]
     Active Substance: RABEPRAZOLE
     Dosage: 1 DOSAGE FORM
  381. RABEPRAZOLE [Suspect]
     Active Substance: RABEPRAZOLE
     Dosage: 1 DOSAGE FORM
  382. RABEPRAZOLE [Suspect]
     Active Substance: RABEPRAZOLE
     Dosage: 1 DOSAGE FORM
  383. RABEPRAZOLE [Suspect]
     Active Substance: RABEPRAZOLE
     Dosage: 1 DOSAGE FORM
  384. RABEPRAZOLE [Suspect]
     Active Substance: RABEPRAZOLE
     Dosage: 1 DOSAGE FORM
  385. RABEPRAZOLE [Suspect]
     Active Substance: RABEPRAZOLE
     Dosage: 1 DOSAGE FORM
  386. RABEPRAZOLE [Suspect]
     Active Substance: RABEPRAZOLE
     Dosage: 1 DOSAGE FORM
  387. RABEPRAZOLE [Suspect]
     Active Substance: RABEPRAZOLE
     Dosage: 1 DOSAGE FORM
  388. RABEPRAZOLE [Suspect]
     Active Substance: RABEPRAZOLE
     Dosage: 1 MILLIGRAM
  389. RABEPRAZOLE [Suspect]
     Active Substance: RABEPRAZOLE
     Dosage: 1 DOSAGE FORM
  390. RABEPRAZOLE [Suspect]
     Active Substance: RABEPRAZOLE
     Dosage: 1 DOSAGE FORM
  391. RABEPRAZOLE [Suspect]
     Active Substance: RABEPRAZOLE
     Dosage: 1 DOSAGE FORM
  392. RABEPRAZOLE [Suspect]
     Active Substance: RABEPRAZOLE
     Dosage: 1 DOSAGE FORM
  393. RABEPRAZOLE [Suspect]
     Active Substance: RABEPRAZOLE
     Dosage: 1 DOSAGE FORM
  394. RABEPRAZOLE [Suspect]
     Active Substance: RABEPRAZOLE
     Dosage: UNK
  395. RABEPRAZOLE [Suspect]
     Active Substance: RABEPRAZOLE
     Dosage: UNK
  396. RABEPRAZOLE [Suspect]
     Active Substance: RABEPRAZOLE
     Dosage: UNK
  397. RABEPRAZOLE [Suspect]
     Active Substance: RABEPRAZOLE
     Dosage: UNK
  398. RABEPRAZOLE [Suspect]
     Active Substance: RABEPRAZOLE
     Dosage: UNK
  399. RABEPRAZOLE [Suspect]
     Active Substance: RABEPRAZOLE
     Dosage: UNK
  400. RABEPRAZOLE [Suspect]
     Active Substance: RABEPRAZOLE
     Dosage: UNK
  401. RABEPRAZOLE [Suspect]
     Active Substance: RABEPRAZOLE
     Dosage: UNK
  402. RABEPRAZOLE [Suspect]
     Active Substance: RABEPRAZOLE
     Dosage: UNK
  403. RABEPRAZOLE [Suspect]
     Active Substance: RABEPRAZOLE
     Dosage: UNK
  404. RABEPRAZOLE [Suspect]
     Active Substance: RABEPRAZOLE
     Dosage: UNK
  405. RABEPRAZOLE [Suspect]
     Active Substance: RABEPRAZOLE
     Dosage: UNK
  406. RABEPRAZOLE [Suspect]
     Active Substance: RABEPRAZOLE
     Dosage: UNK
  407. RABEPRAZOLE [Suspect]
     Active Substance: RABEPRAZOLE
     Dosage: UNK
  408. RABEPRAZOLE [Suspect]
     Active Substance: RABEPRAZOLE
     Dosage: UNK
  409. RABEPRAZOLE [Suspect]
     Active Substance: RABEPRAZOLE
     Dosage: UNK, Q12H
  410. AZITHROMYCIN [Suspect]
     Active Substance: AZITHROMYCIN
     Indication: Migraine
     Dosage: UNK
  411. AZITHROMYCIN [Suspect]
     Active Substance: AZITHROMYCIN
     Dosage: 500 MILLIGRAM, QD
  412. AZITHROMYCIN [Suspect]
     Active Substance: AZITHROMYCIN
     Dosage: UNK
  413. AZITHROMYCIN [Suspect]
     Active Substance: AZITHROMYCIN
     Dosage: UNK
  414. CLOTRIMAZOLE\FLUCONAZOLE [Suspect]
     Active Substance: CLOTRIMAZOLE\FLUCONAZOLE
     Indication: Product used for unknown indication
     Dosage: UNK
  415. CIPROFLOXACIN [Suspect]
     Active Substance: CIPROFLOXACIN
     Indication: Migraine
     Dosage: 1 DOSAGE FORM
  416. CIPROFLOXACIN [Suspect]
     Active Substance: CIPROFLOXACIN
     Dosage: 500 MILLIGRAM
  417. CIPROFLOXACIN [Suspect]
     Active Substance: CIPROFLOXACIN
     Dosage: 1 DOSAGE FORM
  418. CIPROFLOXACIN [Suspect]
     Active Substance: CIPROFLOXACIN
     Dosage: 1 DOSAGE FORM, QD
  419. CIPROFLOXACIN [Suspect]
     Active Substance: CIPROFLOXACIN
     Dosage: 1 DOSAGE FORM, QD
  420. CIPROFLOXACIN [Suspect]
     Active Substance: CIPROFLOXACIN
     Dosage: UNK, QD
  421. CIPROFLOXACIN [Suspect]
     Active Substance: CIPROFLOXACIN
     Dosage: UNK
  422. CIPROFLOXACIN [Suspect]
     Active Substance: CIPROFLOXACIN
     Dosage: 500 MILLIGRAM
  423. INDOMETHACIN [Suspect]
     Active Substance: INDOMETHACIN
     Indication: Migraine
     Dosage: 1 DOSAGE FORM, Q12H
  424. INDOMETHACIN [Suspect]
     Active Substance: INDOMETHACIN
     Dosage: 1 DOSAGE FORM
  425. INDOMETHACIN [Suspect]
     Active Substance: INDOMETHACIN
     Dosage: 1 DOSAGE FORM
  426. INDOMETHACIN [Suspect]
     Active Substance: INDOMETHACIN
     Dosage: UNK, Q12H
  427. RIZATRIPTAN [Suspect]
     Active Substance: RIZATRIPTAN
     Indication: Migraine
     Dosage: UNK
  428. RIZATRIPTAN [Suspect]
     Active Substance: RIZATRIPTAN
     Dosage: 1 DOSAGE FORM, QD
  429. RIZATRIPTAN [Suspect]
     Active Substance: RIZATRIPTAN
     Dosage: UNK UNK, QD
  430. RIZATRIPTAN [Suspect]
     Active Substance: RIZATRIPTAN
     Dosage: UNK
  431. RIZATRIPTAN BENZOATE [Suspect]
     Active Substance: RIZATRIPTAN BENZOATE
     Indication: Migraine
     Dosage: UNK
  432. PROPRANOLOL HYDROCHLORIDE [Suspect]
     Active Substance: PROPRANOLOL HYDROCHLORIDE
     Indication: Migraine
     Dosage: 80 MILLIGRAM
  433. PROPRANOLOL HYDROCHLORIDE [Suspect]
     Active Substance: PROPRANOLOL HYDROCHLORIDE
     Dosage: 40 MILLIGRAM
  434. PROPRANOLOL HYDROCHLORIDE [Suspect]
     Active Substance: PROPRANOLOL HYDROCHLORIDE
     Dosage: UNK
  435. PROPRANOLOL HYDROCHLORIDE [Suspect]
     Active Substance: PROPRANOLOL HYDROCHLORIDE
     Dosage: 40 MILLIGRAM
  436. PROPRANOLOL HYDROCHLORIDE [Suspect]
     Active Substance: PROPRANOLOL HYDROCHLORIDE
     Dosage: 80 MILLIGRAM
  437. PROPRANOLOL HYDROCHLORIDE [Suspect]
     Active Substance: PROPRANOLOL HYDROCHLORIDE
     Dosage: UNK
  438. ZESTRIL [Suspect]
     Active Substance: LISINOPRIL
     Indication: Product used for unknown indication
     Dosage: UNK UNK, QD
  439. ZESTRIL [Suspect]
     Active Substance: LISINOPRIL
     Dosage: 1 DOSAGE FORM, QD
  440. ZESTRIL [Suspect]
     Active Substance: LISINOPRIL
     Dosage: UNK
  441. ZESTRIL [Suspect]
     Active Substance: LISINOPRIL
     Dosage: 1 DOSAGE FORM
  442. ZESTRIL [Suspect]
     Active Substance: LISINOPRIL
     Dosage: 1 DOSAGE FORM, QD
  443. ZESTRIL [Suspect]
     Active Substance: LISINOPRIL
     Dosage: UNK UNK, QD
  444. CIPROFLOXACIN HYDROCHLORIDE [Suspect]
     Active Substance: CIPROFLOXACIN HYDROCHLORIDE
     Indication: Migraine
     Dosage: UNK
  445. CIPROFLOXACIN HYDROCHLORIDE [Suspect]
     Active Substance: CIPROFLOXACIN HYDROCHLORIDE
     Dosage: UNK, QD
  446. CIPROFLOXACIN HYDROCHLORIDE [Suspect]
     Active Substance: CIPROFLOXACIN HYDROCHLORIDE
     Dosage: UNK
  447. FROVATRIPTAN SUCCINATE [Suspect]
     Active Substance: FROVATRIPTAN SUCCINATE
     Indication: Product used for unknown indication
     Dosage: UNK
  448. FROVATRIPTAN SUCCINATE [Suspect]
     Active Substance: FROVATRIPTAN SUCCINATE
     Dosage: UNK
  449. CLOTRIMAZOLE [Suspect]
     Active Substance: CLOTRIMAZOLE
     Indication: Product used for unknown indication
     Dosage: UNK
  450. CLOTRIMAZOLE [Suspect]
     Active Substance: CLOTRIMAZOLE
     Dosage: UNK
  451. AZITHROMYCIN DIHYDRATE [Suspect]
     Active Substance: AZITHROMYCIN DIHYDRATE
     Indication: Migraine
     Dosage: UNK
  452. AZITHROMYCIN DIHYDRATE [Suspect]
     Active Substance: AZITHROMYCIN DIHYDRATE
     Dosage: 500 MILLIGRAM
  453. AZITHROMYCIN DIHYDRATE [Suspect]
     Active Substance: AZITHROMYCIN DIHYDRATE
     Dosage: 50 MILLIGRAM
  454. AZITHROMYCIN DIHYDRATE [Suspect]
     Active Substance: AZITHROMYCIN DIHYDRATE
     Dosage: UNK
  455. ESCITALOPRAM OXALATE [Suspect]
     Active Substance: ESCITALOPRAM OXALATE
     Indication: Migraine
     Dosage: UNK
  456. ESCITALOPRAM OXALATE [Suspect]
     Active Substance: ESCITALOPRAM OXALATE
     Dosage: 10 MILLIGRAM
  457. ESCITALOPRAM OXALATE [Suspect]
     Active Substance: ESCITALOPRAM OXALATE
     Dosage: 40 MILLIGRAM
  458. NEXIUM 24HR [Suspect]
     Active Substance: ESOMEPRAZOLE MAGNESIUM
     Indication: Product used for unknown indication
     Dosage: UNK
  459. NEXIUM 24HR [Suspect]
     Active Substance: ESOMEPRAZOLE MAGNESIUM
     Dosage: 40 MILLIGRAM
  460. NEXIUM 24HR [Suspect]
     Active Substance: ESOMEPRAZOLE MAGNESIUM
     Dosage: UNK
  461. PREDNISOLONE [Suspect]
     Active Substance: PREDNISOLONE
     Indication: Product used for unknown indication
     Dosage: UNK
  462. PREDNISOLONE [Suspect]
     Active Substance: PREDNISOLONE
     Dosage: UNK
  463. PREDNISOLONE [Suspect]
     Active Substance: PREDNISOLONE
     Dosage: UNK
  464. PROPRANOLOL [Suspect]
     Active Substance: PROPRANOLOL HYDROCHLORIDE
     Indication: Migraine
     Dosage: UNK
  465. PROPRANOLOL [Suspect]
     Active Substance: PROPRANOLOL HYDROCHLORIDE
     Dosage: 80 MILLIGRAM
  466. PROPRANOLOL [Suspect]
     Active Substance: PROPRANOLOL HYDROCHLORIDE
     Dosage: 40 MILLIGRAM
  467. PROPRANOLOL [Suspect]
     Active Substance: PROPRANOLOL HYDROCHLORIDE
     Dosage: UNK
  468. ZOLMITRIPTAN [Suspect]
     Active Substance: ZOLMITRIPTAN
     Indication: Product used for unknown indication
     Dosage: UNK
  469. ZOLMITRIPTAN [Suspect]
     Active Substance: ZOLMITRIPTAN
     Dosage: UNK
  470. ZOLMITRIPTAN [Suspect]
     Active Substance: ZOLMITRIPTAN
     Dosage: UNK
  471. ESOMEPRAZOLE MAGNESIUM [Suspect]
     Active Substance: ESOMEPRAZOLE MAGNESIUM
     Indication: Migraine
     Dosage: UNK
  472. PROPRANOLOL HYDROCHLORIDE [Suspect]
     Active Substance: PROPRANOLOL HYDROCHLORIDE
     Indication: Migraine
     Dosage: UNK
  473. TRIMETHOPRIM [Suspect]
     Active Substance: TRIMETHOPRIM
     Indication: Product used for unknown indication
     Dosage: UNK
  474. ESOMEPRAZOLE [Suspect]
     Active Substance: ESOMEPRAZOLE
     Indication: Migraine
  475. INDOMETHACIN SODIUM [Suspect]
     Active Substance: INDOMETHACIN SODIUM
     Indication: Product used for unknown indication
     Dosage: UNK UNK, QD
  476. INDOMETHACIN SODIUM [Suspect]
     Active Substance: INDOMETHACIN SODIUM
     Dosage: 1 DOSAGE FORM, Q12H
  477. TOPAMAX [Suspect]
     Active Substance: TOPIRAMATE
     Indication: Migraine
     Dosage: 25 MILLIGRAM
  478. METOCLOPRAMIDE HYDROCHLORIDE [Suspect]
     Active Substance: METOCLOPRAMIDE HYDROCHLORIDE
     Indication: Product used for unknown indication
     Dosage: UNK
  479. ESOMEPRAZOLE [Suspect]
     Active Substance: ESOMEPRAZOLE
     Indication: Migraine
     Dosage: 40 MILLIGRAM
  480. MOMETASONE [Suspect]
     Active Substance: MOMETASONE
     Indication: Product used for unknown indication
     Dosage: UNK
  481. MOMETASONE [Suspect]
     Active Substance: MOMETASONE
     Indication: Product used for unknown indication
     Dosage: UNK
  482. MOMETASONE FUROATE [Suspect]
     Active Substance: MOMETASONE FUROATE
     Indication: Migraine
     Dosage: UNK
  483. ALBUTEROL [Suspect]
     Active Substance: ALBUTEROL
     Indication: Product used for unknown indication
     Dosage: UNK
  484. ALBUTEROL [Suspect]
     Active Substance: ALBUTEROL
     Dosage: 100 MILLIGRAM
  485. LISINOPRIL [Suspect]
     Active Substance: LISINOPRIL
     Indication: Migraine
  486. VENLAFAXINE HYDROCHLORIDE [Suspect]
     Active Substance: VENLAFAXINE HYDROCHLORIDE
     Indication: Product used for unknown indication
     Dosage: 75 MILLIGRAM
  487. VENLAFAXINE HYDROCHLORIDE [Suspect]
     Active Substance: VENLAFAXINE HYDROCHLORIDE
     Dosage: 150 MILLIGRAM
  488. DANAZOL [Concomitant]
     Active Substance: DANAZOL
     Indication: Product used for unknown indication
     Dosage: UNK
  489. DANAZOL [Concomitant]
     Active Substance: DANAZOL
     Dosage: UNK
  490. PANTOPRAZOLE SODIUM [Concomitant]
     Active Substance: PANTOPRAZOLE SODIUM
     Indication: Product used for unknown indication
     Dosage: UNK
  491. PANTOPRAZOLE SODIUM [Concomitant]
     Active Substance: PANTOPRAZOLE SODIUM
     Dosage: UNK, Q12H
  492. PANTOPRAZOLE SODIUM [Concomitant]
     Active Substance: PANTOPRAZOLE SODIUM
     Dosage: UNK
  493. OSELTAMIVIR PHOSPHATE [Concomitant]
     Active Substance: OSELTAMIVIR PHOSPHATE
     Indication: Product used for unknown indication
     Dosage: UNK
  494. OSELTAMIVIR PHOSPHATE [Concomitant]
     Active Substance: OSELTAMIVIR PHOSPHATE
     Dosage: UNK
  495. NAPROXEN [Concomitant]
     Active Substance: NAPROXEN
     Indication: Product used for unknown indication
     Dosage: UNK
  496. NAPROXEN [Concomitant]
     Active Substance: NAPROXEN
     Dosage: UNK
  497. MORPHINE SULFATE [Concomitant]
     Active Substance: MORPHINE SULFATE
     Indication: Product used for unknown indication
     Dosage: UNK
  498. MORPHINE SULFATE [Concomitant]
     Active Substance: MORPHINE SULFATE
     Dosage: UNK
  499. METOCLOPRAMIDE [Concomitant]
     Active Substance: METOCLOPRAMIDE
     Indication: Product used for unknown indication
     Dosage: UNK
  500. METOCLOPRAMIDE [Concomitant]
     Active Substance: METOCLOPRAMIDE
     Dosage: 1 MILLIGRAM, QD
  501. METOCLOPRAMIDE [Concomitant]
     Active Substance: METOCLOPRAMIDE
     Dosage: UNK
  502. CEFUROXIME SODIUM [Concomitant]
     Active Substance: CEFUROXIME SODIUM
     Indication: Product used for unknown indication
     Dosage: UNK
  503. CEFUROXIME SODIUM [Concomitant]
     Active Substance: CEFUROXIME SODIUM
     Dosage: UNK
  504. CEPHALEXIN [Concomitant]
     Active Substance: CEPHALEXIN
     Indication: Product used for unknown indication
     Dosage: UNK
  505. CEPHALEXIN [Concomitant]
     Active Substance: CEPHALEXIN
     Dosage: UNK
  506. POLYETHYLENE GLYCOL 3350 [Concomitant]
     Active Substance: POLYETHYLENE GLYCOL 3350
     Indication: Product used for unknown indication
     Dosage: UNK
  507. POLYETHYLENE GLYCOL 3350 [Concomitant]
     Active Substance: POLYETHYLENE GLYCOL 3350
     Dosage: UNK
  508. MACROBID [Concomitant]
     Active Substance: NITROFURANTOIN\NITROFURANTOIN MONOHYDRATE
     Indication: Product used for unknown indication
     Dosage: UNK
  509. MACROBID [Concomitant]
     Active Substance: NITROFURANTOIN\NITROFURANTOIN MONOHYDRATE
     Dosage: UNK
  510. FLUTICASONE [Concomitant]
     Active Substance: FLUTICASONE
     Indication: Product used for unknown indication
     Dosage: UNK
  511. FLUTICASONE [Concomitant]
     Active Substance: FLUTICASONE
     Dosage: UNK
  512. FLUOXETINE HYDROCHLORIDE [Concomitant]
     Active Substance: FLUOXETINE HYDROCHLORIDE
     Indication: Product used for unknown indication
     Dosage: UNK
  513. FLUOXETINE HYDROCHLORIDE [Concomitant]
     Active Substance: FLUOXETINE HYDROCHLORIDE
     Dosage: 20 MILLIGRAM
  514. FLUOXETINE HYDROCHLORIDE [Concomitant]
     Active Substance: FLUOXETINE HYDROCHLORIDE
     Dosage: UNK
  515. FERROUS FUMARATE [Concomitant]
     Active Substance: FERROUS FUMARATE
     Indication: Product used for unknown indication
     Dosage: UNK
  516. FERROUS FUMARATE [Concomitant]
     Active Substance: FERROUS FUMARATE
     Dosage: 300 MILLIGRAM
  517. FERROUS FUMARATE [Concomitant]
     Active Substance: FERROUS FUMARATE
     Dosage: UNK
  518. FERROUS FUMARATE [Concomitant]
     Active Substance: FERROUS FUMARATE
     Dosage: UNK
  519. SULFADIAZINE\TRIMETHOPRIM [Concomitant]
     Active Substance: SULFADIAZINE\TRIMETHOPRIM
     Indication: Product used for unknown indication
     Dosage: UNK
  520. SULFADIAZINE\TRIMETHOPRIM [Concomitant]
     Active Substance: SULFADIAZINE\TRIMETHOPRIM
     Dosage: UNK
  521. FROVATRIPTAN [Concomitant]
     Active Substance: FROVATRIPTAN
     Indication: Product used for unknown indication
  522. ALLOPURINOL [Concomitant]
     Active Substance: ALLOPURINOL
     Indication: Product used for unknown indication
     Dosage: 25 MILLIGRAM
  523. DANAZOL [Concomitant]
     Active Substance: DANAZOL
     Indication: Product used for unknown indication
  524. ELAVIL [Concomitant]
     Active Substance: AMITRIPTYLINE HYDROCHLORIDE
     Indication: Product used for unknown indication
     Dosage: 25 MILLIGRAM
  525. FROVATRIPTAN SUCCINATE [Concomitant]
     Active Substance: FROVATRIPTAN SUCCINATE
     Indication: Product used for unknown indication
  526. ALBUTEROL [Concomitant]
     Active Substance: ALBUTEROL
  527. METRONIDAZOLE [Concomitant]
     Active Substance: METRONIDAZOLE
     Indication: Product used for unknown indication

REACTIONS (11)
  - Angioedema [Unknown]
  - Dysphonia [Unknown]
  - Headache [Unknown]
  - Hypersensitivity [Unknown]
  - Swelling face [Unknown]
  - Swollen tongue [Unknown]
  - Drug intolerance [Unknown]
  - Drug ineffective for unapproved indication [Unknown]
  - Off label use [Unknown]
  - Drug ineffective [Unknown]
  - Product use in unapproved indication [Unknown]
